FAERS Safety Report 5466579-6 (Version None)
Quarter: 2007Q3

REPORT INFORMATION
  Report Type: 
  Country: None (occurrence: None)
  Receive Date: 20070925
  Receipt Date: 20070920
  Transmission Date: 20080115
  Serious: Yes (Hospitalization, Other)
  Sender: FDA-Public Use
  Company Number: PHEH2007US11498

PATIENT
  Age: 79 Year
  Sex: Female

DRUGS (10)
  1. FEMARA [Suspect]
     Indication: BREAST CANCER
     Dosage: 2.5 MG, QD
     Route: 048
     Dates: start: 20070206, end: 20070823
  2. ZOMETA [Concomitant]
     Indication: BREAST CANCER METASTATIC
  3. ALTACE [Concomitant]
     Dosage: 5 MG, QD
  4. WELLBUTRIN [Concomitant]
     Dosage: 300 MG, QD
  5. LASIX [Concomitant]
     Dosage: 40 MG, QD
  6. POTASSIUM CHLORIDE [Concomitant]
     Dosage: 20 MEQ, QD
  7. LOPRESSOR [Concomitant]
     Dosage: 25 MG, BID
     Route: 048
  8. RESTORIL [Concomitant]
     Dosage: 15 MG, QHS
  9. XANAX [Concomitant]
     Dosage: 0.25 MG, PRN
  10. COUMADIN [Concomitant]
     Dosage: 4 MG, QD
     Route: 048

REACTIONS (2)
  - DERMATITIS BULLOUS [None]
  - URTICARIA [None]
